FAERS Safety Report 7448292-9 (Version None)
Quarter: 2011Q2

REPORT INFORMATION
  Report Type: 
  Country: None (occurrence: None)
  Receive Date: 20110429
  Receipt Date: 20110420
  Transmission Date: 20111010
  Serious: Yes (Hospitalization)
  Sender: FDA-Public Use
  Company Number: US-ASTRAZENECA-2011SE14150

PATIENT
  Age: 61 Year
  Sex: Female
  Weight: 91.2 kg

DRUGS (6)
  1. NEXIUM [Suspect]
     Route: 048
  2. AZOR 5/40 [Concomitant]
     Indication: HYPERTENSION
     Dosage: 5/40MG DAILY
     Route: 048
  3. WARFARIN SODIUM [Concomitant]
     Indication: THROMBOSIS PROPHYLAXIS
     Dosage: 5MG
     Route: 048
  4. TRAMADOL [Concomitant]
     Indication: PAIN
     Route: 048
  5. LEXAPRO [Concomitant]
     Indication: DEPRESSION
     Route: 048
  6. LIPITOR [Concomitant]
     Indication: HYPERLIPIDAEMIA
     Route: 048

REACTIONS (2)
  - CHOLECYSTECTOMY [None]
  - CHOLECYSTITIS ACUTE [None]
